FAERS Safety Report 8990692 (Version 1)
Quarter: 2012Q4

REPORT INFORMATION
  Report Type: 
  Country: US (occurrence: US)
  Receive Date: 20121228
  Receipt Date: 20121228
  Transmission Date: 20130627
  Serious: No
  Sender: FDA-Public Use
  Company Number: US-PFIZER INC-2012323393

PATIENT
  Age: 75 Year
  Sex: Male
  Weight: 98 kg

DRUGS (3)
  1. SUTENT [Suspect]
     Indication: RENAL CELL CARCINOMA
     Dosage: 50 mg, UNK
     Dates: start: 20120315
  2. SUTENT [Suspect]
     Dosage: 37.5 mg, UNK
     Dates: start: 20120719
  3. PROPAFENONE [Concomitant]
     Indication: HEART RATE IRREGULAR
     Dosage: UNK

REACTIONS (1)
  - Dyspepsia [Recovered/Resolved]
